FAERS Safety Report 7964879-9 (Version None)
Quarter: 2011Q4

REPORT INFORMATION
  Report Type: 
  Country: None (occurrence: None)
  Receive Date: 20111208
  Receipt Date: 20111208
  Transmission Date: 20120403
  Serious: Yes (Disabling)
  Sender: FDA-Public Use
  Company Number: None

PATIENT
  Age: 63 Year
  Sex: Female
  Weight: 63.502 kg

DRUGS (1)
  1. HYDROCORTISONE CREAM [Suspect]
     Indication: RASH
     Dosage: A PEAS SIZED AMOUNT
     Dates: start: 20111026, end: 20111026

REACTIONS (1)
  - SKIN DEPIGMENTATION [None]
